FAERS Safety Report 6417508-X (Version None)
Quarter: 2009Q4

REPORT INFORMATION
  Report Type: 
  Country: None (occurrence: None)
  Receive Date: 20091028
  Receipt Date: 20091019
  Transmission Date: 20100525
  Serious: Yes (Other)
  Sender: FDA-Public Use
  Company Number: DE-JNJFOC-20090905987

PATIENT
  Age: 70 Year
  Sex: Female
  Weight: 85 kg

DRUGS (5)
  1. REMICADE [Suspect]
     Indication: CROHN'S DISEASE
     Dosage: APPROXIMATELY 30 INFUSIONS ADMINISTERED
     Route: 042
     Dates: start: 20060501, end: 20090625
  2. MESALAZINE [Concomitant]
     Indication: CROHN'S DISEASE
  3. DECORTIN [Concomitant]
     Indication: CROHN'S DISEASE
  4. DEXAMETHASONE [Concomitant]
     Indication: PREMEDICATION
  5. CLEMASTINE FUMARATE [Concomitant]
     Indication: PREMEDICATION

REACTIONS (4)
  - CYANOSIS [None]
  - DYSPNOEA [None]
  - INFUSION RELATED REACTION [None]
  - PALPITATIONS [None]
